FAERS Safety Report 4570032-1 (Version None)
Quarter: 2005Q1

REPORT INFORMATION
  Report Type: 
  Country: None (occurrence: None)
  Receive Date: 20050131
  Receipt Date: 20050119
  Transmission Date: 20050727
  Serious: Yes (Disabling)
  Sender: FDA-Public Use
  Company Number: 05H-163-0287549-00

PATIENT
  Age: 53 Year
  Sex: Male
  Weight: 136 kg

DRUGS (5)
  1. NOREPINEPHRINE INJECTION (NOREPINEPHRINE BITARTRATE ) (NOREPINEPHRINE [Suspect]
     Indication: SHOCK
     Dosage: 0.02 UG/KG/MIN, INFUSION
     Route: 042
  2. VASOPRESSIN INJECTION [Suspect]
     Indication: SHOCK
     Dosage: 0.054 U/MIN, INFUSION
  3. RINGER'S [Concomitant]
  4. BLOOD AND RELATED PRODUCTS [Concomitant]
  5. IV FLUIDS [Concomitant]

REACTIONS (2)
  - BLINDNESS UNILATERAL [None]
  - OPTIC ISCHAEMIC NEUROPATHY [None]
